FAERS Safety Report 15316054 (Version 1)
Quarter: 2018Q3

REPORT INFORMATION
  Report Type: Spontaneous
  Country: US (occurrence: US)
  Receive Date: 20180816
  Receipt Date: 20180816
  Transmission Date: 20181010
  Serious: Yes (Hospitalization, Disabling, Other)
  Sender: FDA-Public Use
  Company Number: None

PATIENT
  Age: 61 Year
  Sex: Male
  Weight: 113.85 kg

DRUGS (2)
  1. CIPROFLOXACIN HCL 500 MG [Suspect]
     Active Substance: CIPROFLOXACIN HYDROCHLORIDE
     Indication: CYSTITIS
     Dosage: ?          QUANTITY:20 TABLET(S);?
     Route: 048
     Dates: start: 20180727, end: 20180730
  2. CIPROFLOXACIN HCL 500 MG [Suspect]
     Active Substance: CIPROFLOXACIN HYDROCHLORIDE
     Indication: KIDNEY INFECTION
     Dosage: ?          QUANTITY:20 TABLET(S);?
     Route: 048
     Dates: start: 20180727, end: 20180730

REACTIONS (9)
  - Gait disturbance [None]
  - Depression [None]
  - Diarrhoea [None]
  - Food refusal [None]
  - Tendonitis [None]
  - Dysstasia [None]
  - Disturbance in attention [None]
  - Memory impairment [None]
  - Musculoskeletal stiffness [None]

NARRATIVE: CASE EVENT DATE: 20180728
